FAERS Safety Report 25665609 (Version 1)
Quarter: 2025Q3

REPORT INFORMATION
  Report Type: Spontaneous
  Country: CN (occurrence: CN)
  Receive Date: 20250811
  Receipt Date: 20250811
  Transmission Date: 20251020
  Serious: Yes (Other)
  Sender: BRISTOL-MYERS SQUIBB COMPANY
  Company Number: CN-BRISTOL-MYERS SQUIBB COMPANY-2025-109966

PATIENT
  Age: 8 Decade
  Sex: Female

DRUGS (2)
  1. CAMZYOS [Suspect]
     Active Substance: MAVACAMTEN
     Indication: Hypertrophic cardiomyopathy
     Route: 048
     Dates: start: 202411
  2. CAMZYOS [Suspect]
     Active Substance: MAVACAMTEN
     Route: 048
     Dates: start: 2025

REACTIONS (5)
  - Mitral valve incompetence [Unknown]
  - Left ventricular outflow tract gradient increased [Unknown]
  - Off label use [Unknown]
  - N-terminal prohormone brain natriuretic peptide increased [Unknown]
  - Systolic anterior motion of mitral valve [Unknown]

NARRATIVE: CASE EVENT DATE: 20250101
